FAERS Safety Report 24542263 (Version 3)
Quarter: 2024Q4

REPORT INFORMATION
  Report Type: Report from Study
  Country: JP (occurrence: JP)
  Receive Date: 20241023
  Receipt Date: 20241202
  Transmission Date: 20250114
  Serious: Yes (Hospitalization)
  Sender: ABBVIE
  Company Number: JP-GSKJP-JP2024JPN112130

PATIENT
  Age: 7 Decade
  Sex: Female

DRUGS (1)
  1. BOTULINUM TOXIN TYPE A [Suspect]
     Active Substance: BOTULINUM TOXIN TYPE A
     Indication: Hypertonic bladder
     Dosage: TIME INTERVAL: AS NECESSARY: 100 IU
     Route: 043

REACTIONS (1)
  - Cystitis [Recovered/Resolved]
